FAERS Safety Report 7081748-X (Version None)
Quarter: 2010Q4

REPORT INFORMATION
  Report Type: 
  Country: None (occurrence: None)
  Receive Date: 20101103
  Receipt Date: 20101029
  Transmission Date: 20110411
  Serious: Yes (Death)
  Sender: FDA-Public Use
  Company Number: ES-WYE-G06875810

PATIENT
  Age: 57 Year
  Sex: Male

DRUGS (18)
  1. TEMSIROLIMUS [Suspect]
     Indication: RENAL CANCER
     Dates: start: 20100204, end: 20100225
  2. AMLODIPINE [Concomitant]
     Indication: HYPERTENSION
     Route: 048
     Dates: start: 20100122, end: 20100716
  3. AMLODIPINE [Concomitant]
     Indication: RENAL FAILURE
  4. LOSARTAN [Concomitant]
     Indication: HYPERTENSION
     Route: 048
     Dates: start: 20100122, end: 20100716
  5. LOSARTAN [Concomitant]
     Indication: RENAL FAILURE
  6. CALCIUM CARBONATE [Concomitant]
     Indication: HYPERTENSION
     Dosage: 500 MG EVERY 12 HOURS
     Route: 048
     Dates: start: 20100112, end: 20100716
  7. CALCIUM CARBONATE [Concomitant]
     Indication: RENAL FAILURE
  8. CARVEDILOL [Concomitant]
     Indication: HYPERTENSION
     Route: 048
     Dates: start: 20100122, end: 20100716
  9. CARVEDILOL [Concomitant]
     Indication: RENAL FAILURE
  10. OMEPRAZOLE [Concomitant]
     Indication: PROPHYLAXIS
     Route: 048
     Dates: start: 20100112, end: 20100716
  11. ALLOPURINOL [Concomitant]
     Indication: HYPERTENSION
     Route: 048
     Dates: start: 20100112, end: 20100716
  12. ALLOPURINOL [Concomitant]
     Indication: RENAL FAILURE
  13. DARBEPOETIN ALFA [Concomitant]
     Indication: HYPERTENSION
     Route: 058
     Dates: start: 20100112, end: 20100616
  14. DARBEPOETIN ALFA [Concomitant]
     Indication: RENAL FAILURE
  15. SUTENT [Suspect]
     Indication: RENAL CANCER
     Route: 048
     Dates: start: 20100610, end: 20100624
  16. SUTENT [Suspect]
     Route: 048
     Dates: start: 20100624, end: 20100716
  17. DOXAZOSIN MESYLATE [Concomitant]
     Indication: HYPERTENSION
     Route: 048
     Dates: start: 20100122, end: 20100716
  18. DOXAZOSIN MESYLATE [Concomitant]
     Indication: RENAL FAILURE

REACTIONS (3)
  - ASTHENIA [None]
  - CARDIAC ARREST [None]
  - CARDIOTOXICITY [None]
